FAERS Safety Report 8243711-2 (Version None)
Quarter: 2012Q1

REPORT INFORMATION
  Report Type: 
  Country: None (occurrence: None)
  Receive Date: 20120329
  Receipt Date: 20110310
  Transmission Date: 20120608
  Serious: No
  Sender: FDA-Public Use
  Company Number: US-MYLANLABS-2011S1004678

PATIENT
  Age: 73 Year
  Sex: Female
  Weight: 65.77 kg

DRUGS (1)
  1. EMSAM [Suspect]
     Indication: DEPRESSION
     Dosage: CHANGED Q.D.
     Route: 062
     Dates: start: 20060101, end: 20070101

REACTIONS (1)
  - APPLICATION SITE RASH [None]
